FAERS Safety Report 25270665 (Version 5)
Quarter: 2025Q4

REPORT INFORMATION
  Report Type: Report from Study
  Country: JP (occurrence: JP)
  Receive Date: 20250505
  Receipt Date: 20251224
  Transmission Date: 20260117
  Serious: Yes (Hospitalization, Other)
  Sender: ABBVIE
  Company Number: JP-TAKEDA-2025TJP004183

PATIENT
  Age: 68 Year
  Sex: Male
  Weight: 56 kg

DRUGS (12)
  1. LEUPROLIDE ACETATE [Suspect]
     Active Substance: LEUPROLIDE ACETATE
     Indication: Bulbospinal muscular atrophy congenital
     Dosage: 11.25 MILLIGRAM, Q3MONTHS
     Route: 058
     Dates: start: 20240228
  2. LIMAPROST [Concomitant]
     Active Substance: LIMAPROST
     Indication: Bulbospinal muscular atrophy congenital
     Dosage: FORM STRENGTH :15 MICROGRAM
     Route: 065
  3. RIVOTRIL [Concomitant]
     Active Substance: CLONAZEPAM
     Indication: Bulbospinal muscular atrophy congenital
     Dosage: FORM STRENGTH : 0.5 MILLIGRAM
     Route: 065
  4. ENTRESTO [Concomitant]
     Active Substance: SACUBITRIL\VALSARTAN
     Indication: Hypertension
     Dosage: FORM STRENGTH : 200 MILLIGRAM
     Route: 065
  5. ALFACALCIDOL [Concomitant]
     Active Substance: ALFACALCIDOL
     Indication: Compression fracture
     Dosage: FORM STRENGTH : 0.5 MICROGRAM
     Route: 065
  6. AMLODIPINE [Concomitant]
     Active Substance: AMLODIPINE BESYLATE
     Indication: Hypertension
     Dosage: FORM STRENGTH : 5 MILLIGRAM
     Route: 065
  7. METGLUCO [Concomitant]
     Active Substance: METFORMIN HYDROCHLORIDE
     Indication: Diabetes mellitus
     Dosage: FORM STRENGTH : 1000 MILLIGRAM
     Route: 048
  8. PREGABALIN [Concomitant]
     Active Substance: PREGABALIN
     Indication: Bulbospinal muscular atrophy congenital
     Dosage: FORM STRENGTH : 150 MILLIGRAM
     Route: 065
  9. VONOPRAZAN FUMARATE [Concomitant]
     Active Substance: VONOPRAZAN FUMARATE
     Indication: Gastrooesophageal reflux disease
     Dosage: FORM STRENGTH : 10 MILLIGRAM
     Route: 065
  10. Bio three od [Concomitant]
     Indication: Dyspepsia
     Dosage: FORM STRENGTH : 3 DOSAGE FORM
     Route: 065
  11. TOFOGLIFLOZIN [Concomitant]
     Active Substance: TOFOGLIFLOZIN
     Indication: Diabetes mellitus
     Dosage: FORM STRENGTH : 40 MILLIGRAM
     Route: 065
  12. ONGLYZA [Concomitant]
     Active Substance: SAXAGLIPTIN HYDROCHLORIDE
     Indication: Diabetes mellitus
     Dosage: FORM STRENGTH : 5 MILLIGRAM
     Route: 065

REACTIONS (4)
  - Compression fracture [Recovered/Resolved]
  - Hypertension [Recovering/Resolving]
  - Hyperlipidaemia [Recovering/Resolving]
  - Diabetes mellitus [Recovering/Resolving]

NARRATIVE: CASE EVENT DATE: 20240816
